FAERS Safety Report 17831503 (Version 2)
Quarter: 2020Q2

REPORT INFORMATION
  Report Type: Report from Study
  Country: None (occurrence: CH)
  Receive Date: 20200527
  Receipt Date: 20200529
  Transmission Date: 20200714
  Serious: Yes (Hospitalization)
  Sender: FDA-Public Use
  Company Number: CH-ABBVIE-20K-151-3381124-00

PATIENT
  Age: 62 Year
  Sex: Male

DRUGS (20)
  1. DUODOPA [Suspect]
     Active Substance: CARBIDOPA\LEVODOPA
     Dosage: 16 H THERAPY MORNING DOSE: 3 ML, CONTINUOUS RATE DAY: 3.2 ML/H, EXTRA DOSE: 3 ML
     Route: 050
     Dates: start: 20181201, end: 20190805
  2. HEPARIN [Concomitant]
     Active Substance: HEPARIN SODIUM
     Indication: ANTICOAGULANT THERAPY
     Dates: start: 20190308
  3. LEPONEX [Concomitant]
     Active Substance: CLOZAPINE
     Dosage: DOSE INCREASE
     Route: 048
     Dates: start: 201909, end: 201912
  4. LEPONEX [Concomitant]
     Active Substance: CLOZAPINE
     Dosage: DOSE INCREASE
     Route: 048
     Dates: start: 201912, end: 202002
  5. MADOPAR DR [Concomitant]
     Active Substance: BENSERAZIDE HYDROCHLORIDE\LEVODOPA
     Indication: PRODUCT USED FOR UNKNOWN INDICATION
     Dosage: AT 10PM
     Route: 048
  6. MEMANTIN [Concomitant]
     Active Substance: MEMANTINE
     Indication: PRODUCT USED FOR UNKNOWN INDICATION
     Dosage: MORNING
     Route: 048
     Dates: start: 201907
  7. DUODOPA [Suspect]
     Active Substance: CARBIDOPA\LEVODOPA
     Dosage: 16 H THERAPY MORNING DOSE: 3 ML, CONTINUOUS RATE DAY: 3.7 ML/H, EXTRA DOSE: 3 ML
     Route: 050
     Dates: start: 20190805
  8. CRESTOR [Concomitant]
     Active Substance: ROSUVASTATIN CALCIUM
     Indication: PRODUCT USED FOR UNKNOWN INDICATION
     Route: 048
  9. DUODOPA [Suspect]
     Active Substance: CARBIDOPA\LEVODOPA
     Indication: PARKINSON^S DISEASE
     Dosage: MORNING DOSE 6ML (AT 7AM), CONTINUOUS RATE-DAY 5.5ML/H, EXTRA DOSE 2ML/16H THERAPY
     Route: 050
     Dates: start: 20180313, end: 20181201
  10. LEPONEX [Concomitant]
     Active Substance: CLOZAPINE
     Dosage: 0.5-0.5-0.5-0.5
     Route: 048
     Dates: start: 20200228, end: 202004
  11. EXELON [Concomitant]
     Active Substance: RIVASTIGMINE TARTRATE
     Indication: PRODUCT USED FOR UNKNOWN INDICATION
  12. DUODOPA [Suspect]
     Active Substance: CARBIDOPA\LEVODOPA
     Dosage: CONTINUOUS RATE-DAY 3.8ML/H (6AM TO 10PM)
     Route: 050
     Dates: start: 202004
  13. SEROQUEL [Concomitant]
     Active Substance: QUETIAPINE FUMARATE
     Dosage: DOSE INCREASE
     Dates: start: 201901, end: 201902
  14. LEPONEX [Concomitant]
     Active Substance: CLOZAPINE
     Indication: PRODUCT USED FOR UNKNOWN INDICATION
     Route: 048
     Dates: start: 201902, end: 201909
  15. SEROQUEL [Concomitant]
     Active Substance: QUETIAPINE FUMARATE
     Indication: HALLUCINATION
     Dates: end: 201811
  16. LEPONEX [Concomitant]
     Active Substance: CLOZAPINE
     Dosage: DOSE INCREASED: 25MGX1.5 EVENING, 25MGX3 AT NIGHT
     Route: 048
     Dates: start: 202002, end: 20200228
  17. LEPONEX [Concomitant]
     Active Substance: CLOZAPINE
     Dosage: 0.5-0.5-0.5-1
     Route: 048
     Dates: start: 202004
  18. XARELTO [Concomitant]
     Active Substance: RIVAROXABAN
     Indication: ANTICOAGULANT THERAPY
     Dosage: MORNING
     Route: 048
  19. DUODOPA [Suspect]
     Active Substance: CARBIDOPA\LEVODOPA
     Dosage: CONTINUOUS RATE-DAY 6.4ML/H
     Route: 050
  20. SEROQUEL [Concomitant]
     Active Substance: QUETIAPINE FUMARATE
     Dosage: DOSE DECREASE

REACTIONS (24)
  - Poor quality sleep [Unknown]
  - Urinary tract infection [Recovered/Resolved]
  - Feeling abnormal [Unknown]
  - Dystonia [Unknown]
  - Somnolence [Recovering/Resolving]
  - General physical health deterioration [Recovering/Resolving]
  - Time perception altered [Unknown]
  - Tongue coated [Unknown]
  - Propulsive gait [Unknown]
  - Reduced facial expression [Unknown]
  - Dysphonia [Recovering/Resolving]
  - Dyskinesia [Unknown]
  - Balance disorder [Unknown]
  - Dementia [Unknown]
  - Dizziness [Unknown]
  - Hallucination, visual [Recovering/Resolving]
  - Chills [Unknown]
  - Obesity [Unknown]
  - Hallucination, tactile [Unknown]
  - Screaming [Unknown]
  - Dysarthria [Unknown]
  - Skin turgor decreased [Unknown]
  - Freezing phenomenon [Unknown]
  - Hypokinesia [Unknown]

NARRATIVE: CASE EVENT DATE: 201810
